FAERS Safety Report 23679355 (Version 1)
Quarter: 2024Q1

REPORT INFORMATION
  Report Type: Spontaneous
  Country: SG (occurrence: SG)
  Receive Date: 20240327
  Receipt Date: 20240327
  Transmission Date: 20240410
  Serious: Yes (Other)
  Sender: FDA-Public Use
  Company Number: SG-FreseniusKabi-FK202404836

PATIENT
  Age: 65 Year
  Sex: Female

DRUGS (1)
  1. OXALIPLATIN [Suspect]
     Active Substance: OXALIPLATIN
     Indication: Product used for unknown indication
     Dosage: ROA: INTRAVENOUS (NOT OTHERWISE SPECIFIED) ( INT )

REACTIONS (2)
  - Anaphylactic reaction [Unknown]
  - Hypotension [Unknown]

NARRATIVE: CASE EVENT DATE: 20240313
